FAERS Safety Report 21207931 (Version 1)
Quarter: 2022Q3

REPORT INFORMATION
  Report Type: Spontaneous
  Country: GB (occurrence: GB)
  Receive Date: 20220812
  Receipt Date: 20220812
  Transmission Date: 20221027
  Serious: Yes (Other)
  Sender: FDA-Public Use
  Company Number: None

PATIENT
  Age: 59 Year
  Sex: Female
  Weight: 133 kg

DRUGS (7)
  1. RAMIPRIL [Suspect]
     Active Substance: RAMIPRIL
     Indication: Blood pressure measurement
     Dosage: 2.5 MILLIGRAM DAILY; AT NIGHT,UNIT DOSE : 2.5 MG, FREQUENCY ; 1, FREQUENCY TIME : 1 DAYS , THERAPY E
     Route: 065
     Dates: start: 20220628
  2. BISOPROLOL [Concomitant]
     Active Substance: BISOPROLOL
     Indication: Product used for unknown indication
     Dosage: 1 DOSAGE FORMS DAILY; UNIT DOSE : 1 DOSAGE FORMS, FREQUENCY ; 1, FREQUENCY TIME : 1 DAYS
     Dates: start: 20220705
  3. DIAZEPAM [Concomitant]
     Active Substance: DIAZEPAM
     Indication: Product used for unknown indication
     Dosage: 3 DOSAGE FORMS DAILY; UNIT DOSE : 1 DOSAGE FORMS, FREQUENCY ; 3, FREQUENCY TIME : 1 DAYS,THERAPY DUR
     Dates: start: 20220705, end: 20220706
  4. NITROFURANTOIN [Concomitant]
     Active Substance: NITROFURANTOIN
     Indication: Product used for unknown indication
     Dosage: 200 MILLIGRAM DAILY; UNIT DOSE : 100 MG, FREQUENCY ; 2, FREQUENCY TIME : 1 DAYS, THERAPY DURATION: 3
     Dates: start: 20220730
  5. ROZEX (METRONIDAZOLE) [Concomitant]
     Active Substance: METRONIDAZOLE
     Indication: Product used for unknown indication
     Dosage: 2 DOSAGE FORMS DAILY; UNIT DOSE : 1 DOSAGE FORMS, FREQUENCY ; 2, FREQUENCY TIME : 1 DAYS,THERAPY DUR
     Dates: start: 20220615, end: 20220715
  6. VENTOLIN [Concomitant]
     Active Substance: ALBUTEROL SULFATE
     Indication: Product used for unknown indication
     Dosage: UNIT DOSE : 1 DOSAGE FORMS,
     Route: 055
     Dates: start: 20211110
  7. VERAPAMIL HYDROCHLORIDE [Concomitant]
     Active Substance: VERAPAMIL HYDROCHLORIDE
     Indication: Product used for unknown indication
     Dosage: 1 DOSAGE FORMS DAILY; UNIT DOSE : 1 DOSAGE FORMS, FREQUENCY ; 1, FREQUENCY TIME : 1 DAYS, THERAPY DU
     Dates: start: 20220412, end: 20220705

REACTIONS (2)
  - Feeling abnormal [Unknown]
  - Dissociation [Recovered/Resolved]

NARRATIVE: CASE EVENT DATE: 20220712
